FAERS Safety Report 10045307 (Version 1)
Quarter: 2014Q1

REPORT INFORMATION
  Report Type: Spontaneous
  Country: US (occurrence: None)
  Receive Date: 20140306
  Receipt Date: 20140306
  Transmission Date: 20141002
  Serious: Yes (Other)
  Sender: FDA-Public Use
  Company Number: 163-21880-13044680

PATIENT
  Age: 87 Year
  Sex: Female
  Weight: 44 kg

DRUGS (6)
  1. LIPITOR (ATORVASTATIN) [Concomitant]
  2. REMERON (MIRTAZAPINE) [Concomitant]
  3. ECOTRIN (ACETYLSALICYLIC ACID) [Concomitant]
  4. DILTIAZEM [Concomitant]
  5. REVLIMID (LENALIDOMIDE) (5 MILLIGRAM, CAPSULES) [Suspect]
     Indication: MYELODYSPLASTIC SYNDROME
     Dosage: 14 IN 14 D
     Route: 048
     Dates: start: 201303
  6. VASOTEC (ENALAPRIL MALEATE) [Concomitant]

REACTIONS (1)
  - Haemoglobin decreased [None]
